FAERS Safety Report 5844893-X (Version None)
Quarter: 2008Q3

REPORT INFORMATION
  Report Type: 
  Country: None (occurrence: None)
  Receive Date: 20080813
  Receipt Date: 20080813
  Transmission Date: 20090109
  Serious: Yes (Hospitalization, Other)
  Sender: FDA-Public Use
  Company Number: None

PATIENT
  Age: 61 Year
  Sex: Male
  Weight: 58.9676 kg

DRUGS (1)
  1. STOOL SOFTNER 100MG WALGREENS [Suspect]
     Indication: CONSTIPATION
     Dosage: 4 TWICE A DAY PO
     Route: 048
     Dates: start: 20080101, end: 20080812

REACTIONS (3)
  - DYSPNOEA [None]
  - PYREXIA [None]
  - VOMITING [None]
